FAERS Safety Report 9322318 (Version 2)
Quarter: 2013Q3

REPORT INFORMATION
  Report Type: Report from Study
  Country: DE (occurrence: DE)
  Receive Date: 20130531
  Receipt Date: 20130822
  Transmission Date: 20140515
  Serious: Yes (Hospitalization)
  Sender: FDA-Public Use
  Company Number: DE-ABBOTT-13P-062-1093228-00

PATIENT
  Age: 72 Year
  Sex: Female
  Weight: 88 kg

DRUGS (11)
  1. HUMIRA [Suspect]
     Indication: RHEUMATOID ARTHRITIS
     Route: 058
     Dates: start: 20130207, end: 20130402
  2. HUMIRA [Suspect]
     Route: 058
     Dates: start: 20130508
  3. RAMIPRIL [Concomitant]
     Indication: HYPERTENSION
     Dates: start: 201012
  4. TORASEMID [Concomitant]
     Indication: HYPERTENSION
     Dates: start: 2010
  5. HCT [Concomitant]
     Indication: HYPERTENSION
     Dates: start: 2010
  6. MOVICOL [Concomitant]
     Indication: PROPHYLAXIS
     Dates: start: 2012
  7. L-THYROXIN [Concomitant]
     Indication: HYPOTHYROIDISM
     Dates: start: 199812
  8. CIPRALEX [Concomitant]
     Indication: DEPRESSION
     Dates: start: 2012
  9. PALEXIA [Concomitant]
     Indication: OSTEOARTHRITIS
     Dates: start: 2012
  10. CALCICARE D3 [Concomitant]
     Indication: OSTEOPOROSIS
     Dates: start: 2010
  11. HOGGAR NIGHT [Concomitant]
     Indication: PROPHYLAXIS
     Dates: start: 201212

REACTIONS (1)
  - Spinal column stenosis [Recovered/Resolved]
